FAERS Safety Report 23503914 (Version 1)
Quarter: 2024Q1

REPORT INFORMATION
  Report Type: Spontaneous
  Country: IT (occurrence: IT)
  Receive Date: 20240209
  Receipt Date: 20240209
  Transmission Date: 20240409
  Serious: Yes (Other)
  Sender: FDA-Public Use
  Company Number: IT-CELLTRION INC.-2024IT002894

PATIENT

DRUGS (1)
  1. ADALIMUMAB [Suspect]
     Active Substance: ADALIMUMAB\ISOPROPYL ALCOHOL
     Indication: Hidradenitis
     Dosage: ADMINISTERED FOR ONE YEAR (DOSAGE1: UNIT=NOT AVAILABLE)
     Route: 065

REACTIONS (2)
  - Major depression [Unknown]
  - Therapeutic product effect decreased [Unknown]
